FAERS Safety Report 15438280 (Version 1)
Quarter: 2018Q3

REPORT INFORMATION
  Report Type: Spontaneous
  Country: JP (occurrence: JP)
  Receive Date: 20180928
  Receipt Date: 20180928
  Transmission Date: 20181010
  Serious: Yes (Life-Threatening, Hospitalization)
  Sender: FDA-Public Use
  Company Number: JP-HBP-2018JP017583

PATIENT
  Age: 68 Year
  Sex: Male
  Weight: 57 kg

DRUGS (11)
  1. DEXART [Suspect]
     Active Substance: DEXAMETHASONE SODIUM PHOSPHATE
     Indication: PROPHYLAXIS OF NAUSEA AND VOMITING
     Dosage: 6.6 MILLIGRAM, SINGLE
     Route: 041
     Dates: start: 20180221, end: 20180221
  2. ALOXI [Suspect]
     Active Substance: PALONOSETRON HYDROCHLORIDE
     Dosage: 0.75 MILLIGRAM, SINGLE
     Route: 041
     Dates: start: 20180228, end: 20180228
  3. LOXOPROFEN [Concomitant]
     Active Substance: LOXOPROFEN
     Dosage: UNK
     Dates: start: 20180119
  4. ALOXI [Suspect]
     Active Substance: PALONOSETRON HYDROCHLORIDE
     Indication: PROPHYLAXIS OF NAUSEA AND VOMITING
     Dosage: 0.75 MILLIGRAM, SINGLE
     Route: 041
     Dates: start: 20180221, end: 20180221
  5. ABRAXANE [Suspect]
     Active Substance: PACLITAXEL
     Indication: PANCREATIC CARCINOMA
     Dosage: 195 MILLIGRAM, DAYS 1, 8, AND 15 OF EACH 28?DAY CYCLE
     Route: 041
     Dates: start: 20180221, end: 20180228
  6. GEMZAR [Suspect]
     Active Substance: GEMCITABINE HYDROCHLORIDE
     Indication: PANCREATIC CARCINOMA
     Dosage: 1590 MILLIGRAM, DAYS 1, 8, AND 15 OF EACH 28?DAY CYCLE
     Route: 041
     Dates: start: 20180221, end: 20180228
  7. DEXART [Suspect]
     Active Substance: DEXAMETHASONE SODIUM PHOSPHATE
     Indication: ALLERGY PROPHYLAXIS
     Dosage: 6.6 MILLIGRAM, SINGLE
     Route: 041
     Dates: start: 20180228, end: 20180228
  8. AMLODIPINE [Concomitant]
     Active Substance: AMLODIPINE BESYLATE
     Indication: HYPERTENSION
     Dosage: 5 MILLIGRAM, QD
     Route: 048
  9. SOLU?CORTEF [Suspect]
     Active Substance: HYDROCORTISONE SODIUM SUCCINATE
     Indication: DRUG ERUPTION
     Dosage: 100 MILLIGRAM, QD
     Route: 041
     Dates: start: 20180228, end: 20180228
  10. FAMOTIDINE. [Concomitant]
     Active Substance: FAMOTIDINE
     Indication: GASTRIC ULCER
     Dosage: 20 MILLIGRAM, QD
     Route: 048
  11. PLETAAL [Concomitant]
     Active Substance: CILOSTAZOL
     Indication: THROMBOSIS PROPHYLAXIS
     Dosage: 200 MILLIGRAM, QD
     Route: 048

REACTIONS (2)
  - Anaphylactic shock [Recovered/Resolved]
  - Urticaria [Recovered/Resolved]

NARRATIVE: CASE EVENT DATE: 20180228
